FAERS Safety Report 11339466 (Version 1)
Quarter: 2015Q3

REPORT INFORMATION
  Report Type: Spontaneous
  Country: US (occurrence: US)
  Receive Date: 20150805
  Receipt Date: 20150805
  Transmission Date: 20151125
  Serious: No
  Sender: FDA-Public Use
  Company Number: US-009507513-1508USA001391

PATIENT
  Age: 57 Year
  Sex: Female

DRUGS (7)
  1. BELSOMRA [Suspect]
     Active Substance: SUVOREXANT
     Indication: INSOMNIA
     Dosage: 15 MG, QD
     Route: 048
     Dates: start: 20150727, end: 20150727
  2. BELSOMRA [Suspect]
     Active Substance: SUVOREXANT
     Dosage: 20 MG, HS
     Route: 048
     Dates: start: 20150728, end: 20150729
  3. INVEGA SUSTENNA [Concomitant]
     Active Substance: PALIPERIDONE PALMITATE
  4. ADDERALL [Concomitant]
     Active Substance: AMPHETAMINE ASPARTATE\AMPHETAMINE SULFATE\DEXTROAMPHETAMINE SACCHARATE\DEXTROAMPHETAMINE SULFATE
  5. SEROQUEL [Concomitant]
     Active Substance: QUETIAPINE FUMARATE
  6. TOVIAZ [Concomitant]
     Active Substance: FESOTERODINE FUMARATE
  7. SONATA [Concomitant]
     Active Substance: ZALEPLON

REACTIONS (1)
  - Drug ineffective [Unknown]

NARRATIVE: CASE EVENT DATE: 20150727
